FAERS Safety Report 4730196-3 (Version None)
Quarter: 2005Q3

REPORT INFORMATION
  Report Type: 
  Country: None (occurrence: None)
  Receive Date: 20050801
  Receipt Date: 20050720
  Transmission Date: 20060218
  Serious: Yes (Death)
  Sender: FDA-Public Use
  Company Number: GB-GLAXOSMITHKLINE-B0388647A

PATIENT
  Age: 27 Year
  Sex: Female

DRUGS (4)
  1. ZYBAN [Suspect]
     Route: 048
  2. PROPRANOLOL [Concomitant]
  3. BENZODIAZEPINE [Concomitant]
  4. ALCOHOL [Concomitant]

REACTIONS (2)
  - DEATH [None]
  - INTENTIONAL MISUSE [None]
